FAERS Safety Report 23127718 (Version 3)
Quarter: 2023Q4

REPORT INFORMATION
  Report Type: Report from Study
  Country: US (occurrence: US)
  Receive Date: 20231031
  Receipt Date: 20231109
  Transmission Date: 20240110
  Serious: No
  Sender: FDA-Public Use
  Company Number: US-002147023-NVSC2023US232363

PATIENT
  Sex: Female

DRUGS (3)
  1. COSENTYX [Suspect]
     Active Substance: SECUKINUMAB
     Indication: Psoriasis
     Dosage: UNK
     Route: 065
  2. TRIAMCINOLONE [Suspect]
     Active Substance: TRIAMCINOLONE
     Indication: Psoriasis
     Dosage: UNK
     Route: 065
  3. TALTZ [Suspect]
     Active Substance: IXEKIZUMAB
     Indication: Psoriasis
     Dosage: UNK
     Route: 065

REACTIONS (10)
  - Injection site erythema [Unknown]
  - Injection site pruritus [Unknown]
  - Psoriasis [Unknown]
  - Rash pruritic [Unknown]
  - Rash erythematous [Unknown]
  - Skin plaque [Unknown]
  - Skin exfoliation [Unknown]
  - Erythema [Unknown]
  - Hypersensitivity [Unknown]
  - Drug ineffective [Unknown]
